FAERS Safety Report 4774465-X (Version None)
Quarter: 2005Q3

REPORT INFORMATION
  Report Type: 
  Country: None (occurrence: None)
  Receive Date: 20050920
  Receipt Date: 20050907
  Transmission Date: 20060218
  Serious: Yes (Hospitalization)
  Sender: FDA-Public Use
  Company Number: 005584

PATIENT
  Age: 57 Year
  Sex: Male
  Weight: 97.1 kg

DRUGS (5)
  1. WARFARIN SODIUM [Suspect]
     Indication: THROMBOSIS PROPHYLAXIS
     Dosage: ORAL
     Route: 048
     Dates: start: 20041101
  2. PLAVIX [Concomitant]
  3. ASPIRIN [Concomitant]
  4. ZOCOR [Concomitant]
  5. VITAMINS [Concomitant]

REACTIONS (2)
  - FALL [None]
  - INTERNATIONAL NORMALISED RATIO INCREASED [None]
